FAERS Safety Report 23154012 (Version 1)
Quarter: 2023Q4

REPORT INFORMATION
  Report Type: Spontaneous
  Country: CN (occurrence: CN)
  Receive Date: 20231107
  Receipt Date: 20231107
  Transmission Date: 20240110
  Serious: Yes (Hospitalization, Other)
  Sender: FDA-Public Use
  Company Number: CN-MLMSERVICE-20231018-4611991-1

PATIENT
  Age: 2 Decade
  Sex: Female

DRUGS (6)
  1. QUETIAPINE FUMARATE [Suspect]
     Active Substance: QUETIAPINE FUMARATE
     Indication: Hallucination, auditory
     Dosage: 400 MG, ONCE PER DAY
     Dates: start: 20201225, end: 20210116
  2. QUETIAPINE FUMARATE [Suspect]
     Active Substance: QUETIAPINE FUMARATE
     Indication: Abnormal behaviour
     Dosage: 300 MG, ONCE PER DAY
     Dates: start: 2017, end: 20201225
  3. QUETIAPINE FUMARATE [Suspect]
     Active Substance: QUETIAPINE FUMARATE
     Dosage: 100 MG, ONCE PER DAY
     Dates: start: 20210118, end: 20210125
  4. QUETIAPINE FUMARATE [Suspect]
     Active Substance: QUETIAPINE FUMARATE
     Dosage: 300 MG, ONCE PER DAY
     Dates: start: 20210116, end: 20210118
  5. ZIPRASIDONE [Suspect]
     Active Substance: ZIPRASIDONE
     Indication: Abnormal behaviour
     Dosage: 60 MG, ONCE PER DAY
     Dates: start: 2017
  6. ZIPRASIDONE [Suspect]
     Active Substance: ZIPRASIDONE
     Indication: Hallucination, auditory

REACTIONS (5)
  - Extrapyramidal disorder [Recovered/Resolved]
  - Tardive dyskinesia [Recovered/Resolved]
  - Fatigue [Unknown]
  - Dehydration [Unknown]
  - Arthropathy [Unknown]
